FAERS Safety Report 24533286 (Version 1)
Quarter: 2024Q4

REPORT INFORMATION
  Report Type: Spontaneous
  Country: US (occurrence: None)
  Receive Date: 20241018
  Receipt Date: 20241018
  Transmission Date: 20250114
  Serious: No
  Sender: Public
  Company Number: None

PATIENT
  Age: 28 Year
  Sex: Female
  Weight: 54.43 kg

DRUGS (1)
  1. NEXPLANON [Suspect]
     Active Substance: ETONOGESTREL
     Dates: start: 20241010, end: 20241017

REACTIONS (4)
  - Complication associated with device [None]
  - Implant site haemorrhage [None]
  - Implant site discolouration [None]
  - Skin exfoliation [None]

NARRATIVE: CASE EVENT DATE: 20241017
